FAERS Safety Report 8174010-5 (Version None)
Quarter: 2012Q1

REPORT INFORMATION
  Report Type: 
  Country: None (occurrence: None)
  Receive Date: 20120229
  Receipt Date: 20120224
  Transmission Date: 20120608
  Serious: Yes (Hospitalization)
  Sender: FDA-Public Use
  Company Number: ES-ROCHE-1043488

PATIENT
  Age: 14 Month
  Sex: Male

DRUGS (1)
  1. MABTHERA [Suspect]
     Indication: ANAEMIA HAEMOLYTIC AUTOIMMUNE
     Dates: start: 20111001

REACTIONS (2)
  - RASH GENERALISED [None]
  - DERMATITIS EXFOLIATIVE [None]
